FAERS Safety Report 5139488-X (Version None)
Quarter: 2006Q4

REPORT INFORMATION
  Report Type: 
  Country: None (occurrence: None)
  Receive Date: 20061024
  Receipt Date: 20061013
  Transmission Date: 20070319
  Serious: Yes (Other)
  Sender: FDA-Public Use
  Company Number: 2006125264

PATIENT
  Sex: Female
  Weight: 61.2356 kg

DRUGS (1)
  1. XANAX [Suspect]
     Indication: BIPOLAR DISORDER

REACTIONS (34)
  - ACTIVITIES OF DAILY LIVING IMPAIRED [None]
  - AGEUSIA [None]
  - AGITATION [None]
  - AGORAPHOBIA [None]
  - ANGER [None]
  - ANXIETY [None]
  - APATHY [None]
  - ARTHRALGIA [None]
  - BLADDER DISORDER [None]
  - BRONCHITIS [None]
  - CONFUSIONAL STATE [None]
  - CONSTIPATION [None]
  - DECREASED APPETITE [None]
  - DISTURBANCE IN ATTENTION [None]
  - DRUG ABUSER [None]
  - DRUG INEFFECTIVE [None]
  - FEELING ABNORMAL [None]
  - INFECTION [None]
  - INSOMNIA [None]
  - IRRITABLE BOWEL SYNDROME [None]
  - LOSS OF LIBIDO [None]
  - MALAISE [None]
  - MARITAL PROBLEM [None]
  - MOOD ALTERED [None]
  - OEDEMA PERIPHERAL [None]
  - PAIN [None]
  - PANIC DISORDER [None]
  - PARANOIA [None]
  - PERSONALITY CHANGE [None]
  - PHARYNGOLARYNGEAL PAIN [None]
  - RASH [None]
  - SUICIDAL IDEATION [None]
  - SWELLING [None]
  - THINKING ABNORMAL [None]
